FAERS Safety Report 6734720-0 (Version None)
Quarter: 2010Q2

REPORT INFORMATION
  Report Type: 
  Country: None (occurrence: None)
  Receive Date: 20100519
  Receipt Date: 20100519
  Transmission Date: 20101027
  Serious: Yes (Other)
  Sender: FDA-Public Use
  Company Number: None

PATIENT
  Age: 55 Year
  Sex: Female

DRUGS (3)
  1. DOXIL [Suspect]
     Indication: MULTIPLE MYELOMA
  2. VELCADE [Suspect]
  3. DEXAMETHASONE [Suspect]

REACTIONS (1)
  - BLOOD STEM CELL HARVEST FAILURE [None]
